FAERS Safety Report 9798720 (Version 1)
Quarter: 2014Q1

REPORT INFORMATION
  Report Type: Spontaneous
  Country: US (occurrence: US)
  Receive Date: 20140106
  Receipt Date: 20140106
  Transmission Date: 20141002
  Serious: No
  Sender: FDA-Public Use
  Company Number: US-GILEAD-2010-0029910

PATIENT
  Age: 51 Year
  Sex: Male
  Weight: 76.2 kg

DRUGS (6)
  1. LETAIRIS [Suspect]
     Indication: PULMONARY ARTERIAL HYPERTENSION
     Route: 048
     Dates: start: 20100604, end: 20100615
  2. COUMADIN [Concomitant]
  3. REVATIO [Concomitant]
  4. FLOLAN [Concomitant]
  5. MORPHINE SULFATE [Concomitant]
  6. PERCOCET [Concomitant]

REACTIONS (1)
  - Oedema peripheral [Unknown]
